FAERS Safety Report 10266134 (Version 1)
Quarter: 2014Q2

REPORT INFORMATION
  Report Type: Spontaneous
  Country: TR (occurrence: TR)
  Receive Date: 20140627
  Receipt Date: 20140627
  Transmission Date: 20141212
  Serious: Yes (Hospitalization, Other)
  Sender: FDA-Public Use
  Company Number: DE-TEVA-490439GER

PATIENT
  Sex: 0

DRUGS (3)
  1. NIFEDIPINE [Suspect]
     Route: 064
  2. AMOXICILLIN [Suspect]
     Route: 064
  3. BETAMETHASONE [Suspect]
     Route: 064

REACTIONS (1)
  - Bradycardia foetal [Unknown]
